FAERS Safety Report 24606823 (Version 1)
Quarter: 2024Q4

REPORT INFORMATION
  Report Type: Spontaneous
  Country: US (occurrence: US)
  Receive Date: 20241112
  Receipt Date: 20241112
  Transmission Date: 20250114
  Serious: No
  Sender: AUROBINDO
  Company Number: US-AUROBINDO-AUR-APL-2024-046216

PATIENT
  Age: 54 Year
  Sex: Female

DRUGS (1)
  1. HYDROCORTISONE [Suspect]
     Active Substance: HYDROCORTISONE
     Indication: Primary adrenal insufficiency
     Dosage: UNK
     Route: 065
     Dates: start: 20240829

REACTIONS (4)
  - Fatigue [Unknown]
  - Nausea [Unknown]
  - Tremor [Unknown]
  - Product substitution issue [Unknown]
